FAERS Safety Report 11801172 (Version 2)
Quarter: 2016Q1

REPORT INFORMATION
  Report Type: Spontaneous
  Country: US (occurrence: US)
  Receive Date: 20151204
  Receipt Date: 20160118
  Transmission Date: 20160525
  Serious: No
  Sender: FDA-Public Use
  Company Number: US-009507513-1512USA001859

PATIENT
  Sex: Female

DRUGS (1)
  1. NEXPLANON [Suspect]
     Active Substance: ETONOGESTREL
     Dosage: 68 MG / 1 ROD EVERY 3 YEARS
     Route: 059

REACTIONS (3)
  - Needle issue [Unknown]
  - No adverse event [Unknown]
  - Device difficult to use [Unknown]
